FAERS Safety Report 8617798-9 (Version None)
Quarter: 2012Q3

REPORT INFORMATION
  Report Type: 
  Country: None (occurrence: None)
  Receive Date: 20120824
  Receipt Date: 20120323
  Transmission Date: 20120928
  Serious: No
  Sender: FDA-Public Use
  Company Number: US-ASTRAZENECA-2012SE12794

PATIENT
  Age: 44 Year
  Sex: Female
  Weight: 83.9 kg

DRUGS (4)
  1. SYMBICORT [Suspect]
     Indication: ASTHMA
     Dosage: 160/4.5 MCG 2 PUFFS TWICE DAILY
     Route: 055
     Dates: start: 20111001
  2. SPIRIVA [Concomitant]
  3. SYMBICORT [Suspect]
     Indication: BRONCHITIS
     Dosage: 160/4.5 MCG 2 PUFFS TWICE DAILY
     Route: 055
     Dates: start: 20111001
  4. VENTOLIN HFA [Concomitant]

REACTIONS (6)
  - DYSPNOEA [None]
  - TREMOR [None]
  - NERVOUSNESS [None]
  - CONFUSIONAL STATE [None]
  - DIZZINESS [None]
  - OFF LABEL USE [None]
